FAERS Safety Report 7713657-4 (Version None)
Quarter: 2011Q3

REPORT INFORMATION
  Report Type: 
  Country: None (occurrence: None)
  Receive Date: 20110826
  Receipt Date: 20110826
  Transmission Date: 20111222
  Serious: Yes (Hospitalization, Other)
  Sender: FDA-Public Use
  Company Number: JP-PFIZER INC-2011162336

PATIENT
  Age: 52 Year
  Sex: Female

DRUGS (6)
  1. DEPAS [Concomitant]
     Indication: CERVICOBRACHIAL SYNDROME
     Dosage: 0.5 UG, 1X/DAY
     Route: 048
     Dates: start: 20091024
  2. MIORELARK [Concomitant]
     Indication: CERVICOBRACHIAL SYNDROME
     Dosage: 50 MG, 1X/DAY
     Route: 048
     Dates: start: 20091024
  3. CELECOXIB [Suspect]
     Indication: BACK PAIN
  4. LORCAM [Concomitant]
     Dosage: 8 MG, AS NEEDED
     Route: 048
     Dates: start: 20091024
  5. CELECOXIB [Suspect]
     Indication: HEADACHE
     Dosage: 100 MG, 2X/DAY
     Route: 048
     Dates: start: 20110622, end: 20110706
  6. CLARITIN [Concomitant]
     Indication: RHINITIS ALLERGIC
     Dosage: 10 MG, 1X/DAY
     Route: 048
     Dates: start: 20091024

REACTIONS (1)
  - ANAPHYLACTIC REACTION [None]
